FAERS Safety Report 4576932-0 (Version None)
Quarter: 2005Q1

REPORT INFORMATION
  Report Type: 
  Country: None (occurrence: None)
  Receive Date: 20050208
  Receipt Date: 20050126
  Transmission Date: 20050727
  Serious: Yes (Other)
  Sender: FDA-Public Use
  Company Number: 2004108876

PATIENT
  Sex: Female

DRUGS (2)
  1. BEXTRA [Suspect]
     Indication: BONE PAIN
     Dosage: 20 MG (20 MG, 1 IN 1 D), ORAL
     Route: 048
  2. LORATADINE [Suspect]
     Indication: HYPERSENSITIVITY
     Dosage: 10 MG (10 MG, 1 IN 1 D), ORAL
     Route: 048
     Dates: start: 20040601, end: 20040601

REACTIONS (1)
  - RASH GENERALISED [None]
